FAERS Safety Report 7085863-6 (Version None)
Quarter: 2010Q4

REPORT INFORMATION
  Report Type: 
  Country: None (occurrence: None)
  Receive Date: 20101105
  Receipt Date: 20101027
  Transmission Date: 20110411
  Serious: Yes (Hospitalization, Other)
  Sender: FDA-Public Use
  Company Number: JP-ROCHE-738275

PATIENT
  Age: 20 Year
  Sex: Female

DRUGS (7)
  1. CELLCEPT [Suspect]
     Indication: PROPHYLAXIS AGAINST TRANSPLANT REJECTION
     Route: 048
  2. CELLCEPT [Suspect]
     Dosage: DOSE DECREASED
     Route: 048
  3. CYCLOSPORINE [Concomitant]
     Route: 065
  4. CYCLOSPORINE [Concomitant]
     Dosage: DOSE DECREASED
     Route: 065
  5. METHYLPREDNISOLONE [Concomitant]
     Route: 065
  6. METHYLPREDNISOLONE [Concomitant]
     Dosage: DOSE INCREASED
     Route: 065
  7. BASILIXIMAB [Concomitant]
     Route: 065

REACTIONS (3)
  - CYTOMEGALOVIRUS INFECTION [None]
  - IDIOPATHIC THROMBOCYTOPENIC PURPURA [None]
  - PANCYTOPENIA [None]
